FAERS Safety Report 4859323-4 (Version None)
Quarter: 2005Q4

REPORT INFORMATION
  Report Type: 
  Country: None (occurrence: None)
  Receive Date: 20051219
  Receipt Date: 20041115
  Transmission Date: 20060501
  Serious: No
  Sender: FDA-Public Use
  Company Number: US-GLAXOSMITHKLINE-A0533861A

PATIENT
  Age: 27 Year
  Sex: Male

DRUGS (1)
  1. NICODERM CQ [Suspect]
     Dates: start: 20041112, end: 20041113

REACTIONS (5)
  - DIZZINESS [None]
  - FEELING JITTERY [None]
  - HEADACHE [None]
  - MALAISE [None]
  - PYREXIA [None]
